FAERS Safety Report 8521957-3 (Version None)
Quarter: 2012Q3

REPORT INFORMATION
  Report Type: 
  Country: None (occurrence: None)
  Receive Date: 20120719
  Receipt Date: 20120619
  Transmission Date: 20120928
  Serious: No
  Sender: FDA-Public Use
  Company Number: US-BRISTOL-MYERS SQUIBB COMPANY-16696692

PATIENT
  Age: 63 Year
  Sex: Male
  Weight: 72 kg

DRUGS (6)
  1. YERVOY [Suspect]
  2. ERBITUX [Suspect]
     Indication: RECTAL CANCER STAGE IV
     Route: 042
     Dates: start: 20120607
  3. FLUOROURACIL [Concomitant]
  4. LANTUS [Concomitant]
  5. IRINOTECAN HCL [Concomitant]
  6. GLIMEPIRIDE [Concomitant]

REACTIONS (2)
  - HICCUPS [None]
  - WEIGHT DECREASED [None]
